FAERS Safety Report 5968092-6 (Version None)
Quarter: 2008Q4

REPORT INFORMATION
  Report Type: 
  Country: None (occurrence: None)
  Receive Date: 20081121
  Receipt Date: 20081028
  Transmission Date: 20090506
  Serious: Yes (Hospitalization)
  Sender: FDA-Public Use
  Company Number: 2008S1019432

PATIENT
  Sex: Male

DRUGS (5)
  1. CYCLOSPORINE [Suspect]
     Indication: IMMUNOSUPPRESSION
  2. METHOTREXATE [Suspect]
     Indication: IMMUNOSUPPRESSION
  3. SIROLIMUS (SIROLIMUS) [Suspect]
     Indication: IMMUNOSUPPRESSION
  4. CYCLOPHOSPHAMIDE [Suspect]
  5. RITUXIMAB [Concomitant]

REACTIONS (5)
  - ACUTE GRAFT VERSUS HOST DISEASE [None]
  - CONVULSION [None]
  - ENCEPHALITIS [None]
  - HUMAN POLYOMAVIRUS INFECTION [None]
  - PNEUMONIA ASPIRATION [None]
